FAERS Safety Report 8294404-7 (Version None)
Quarter: 2012Q2

REPORT INFORMATION
  Report Type: 
  Country: None (occurrence: None)
  Receive Date: 20120418
  Receipt Date: 20120413
  Transmission Date: 20120825
  Serious: Yes (Hospitalization, Congenital Anomaly, Other)
  Sender: FDA-Public Use
  Company Number: US-PFIZER INC-2012044625

PATIENT
  Sex: Female
  Weight: 3 kg

DRUGS (19)
  1. PROMETHAZINE [Concomitant]
     Indication: NAUSEA
     Dosage: UNK MG, 4X/DAY
     Route: 064
  2. MAGNESIUM HYDROXIDE TAB [Concomitant]
     Dosage: 10 ML, UNK
     Route: 064
     Dates: start: 20071216
  3. PREVACID [Concomitant]
     Indication: GASTROOESOPHAGEAL REFLUX DISEASE
     Dosage: 30 MG, UNK
     Route: 064
     Dates: start: 20070628, end: 20071228
  4. MULTI-VITAMINS [Concomitant]
     Dosage: UNK
     Route: 064
     Dates: start: 20071120
  5. CHLORHEXIDINE [Concomitant]
     Dosage: UNK
     Route: 064
     Dates: start: 20080205
  6. AEROBID [Concomitant]
     Dosage: TWO PUFFS TWICE A DAY
     Route: 064
  7. REGLAN [Concomitant]
     Dosage: 10 MG, 2X/DAY (BEFORE MEALS AND AT BED TIME)
     Route: 064
     Dates: start: 20071202, end: 20071216
  8. TORADOL [Concomitant]
     Dosage: 30 MG, UNK
     Route: 064
     Dates: start: 20080624
  9. AMOXICILLIN [Concomitant]
     Dosage: 500 MG, 3X/DAY
     Route: 064
     Dates: start: 20080530
  10. ZOLOFT [Suspect]
     Dosage: 12.5 MG, 1X/DAY
     Route: 064
     Dates: start: 20080415
  11. ZOFRAN [Concomitant]
     Indication: NAUSEA
     Dosage: 4 MG, 4X/DAY
     Route: 064
  12. ZOFRAN [Concomitant]
     Indication: VOMITING
  13. CETIRIZINE HCL [Concomitant]
     Dosage: UNK
     Route: 064
  14. ZANTAC [Concomitant]
     Indication: GASTROOESOPHAGEAL REFLUX DISEASE
     Dosage: 150 MG, 2X/DAY
     Route: 064
     Dates: start: 20071202
  15. FOLIC ACID [Concomitant]
     Dosage: UNK
     Route: 064
     Dates: start: 20070301
  16. NEXIUM [Concomitant]
     Dosage: 40 MG, UNK
     Route: 064
     Dates: start: 20071216
  17. ZOLOFT [Suspect]
     Indication: ANXIETY
     Dosage: 12.5 MG, 1X/DAY
     Route: 064
     Dates: start: 20070425, end: 20071016
  18. PROMETHAZINE [Concomitant]
     Indication: VOMITING
  19. MACROBID [Concomitant]
     Dosage: 100 MG, 2X/DAY
     Route: 064
     Dates: start: 20080523

REACTIONS (8)
  - JAUNDICE NEONATAL [None]
  - ATRIAL SEPTAL DEFECT [None]
  - MATERNAL EXPOSURE TIMING UNSPECIFIED [None]
  - CONGENITAL TRICUSPID VALVE INCOMPETENCE [None]
  - PULMONARY VALVE STENOSIS [None]
  - PATENT DUCTUS ARTERIOSUS [None]
  - VENTRICULAR SEPTAL DEFECT [None]
  - TACHYCARDIA FOETAL [None]
